FAERS Safety Report 21009348 (Version 1)
Quarter: 2022Q2

REPORT INFORMATION
  Report Type: Spontaneous
  Country: US (occurrence: None)
  Receive Date: 20220624
  Receipt Date: 20220624
  Transmission Date: 20220721
  Serious: Yes (Other)
  Sender: FDA-Public Use
  Company Number: None

PATIENT
  Age: 68 Year
  Sex: Female
  Weight: 66.6 kg

DRUGS (27)
  1. EVENITY [Suspect]
     Active Substance: ROMOSOZUMAB-AQQG
     Indication: Osteoporosis
     Dosage: FREQUENCY : MONTHLY;?OTHER ROUTE : ROTATED FROM STOMACH, TO ARMS, TO THIGH;?
     Route: 050
     Dates: start: 20211214, end: 20220427
  2. OZEMPIC [Concomitant]
     Active Substance: SEMAGLUTIDE
  3. Metformin (Glucophage) [Concomitant]
  4. ACTOS [Concomitant]
     Active Substance: PIOGLITAZONE HYDROCHLORIDE
  5. ZENPEP [Concomitant]
     Active Substance: PANCRELIPASE AMYLASE\PANCRELIPASE LIPASE\PANCRELIPASE PROTEASE
  6. GLIMEPIRIDE [Concomitant]
     Active Substance: GLIMEPIRIDE
  7. Ceterizine HCL (Allegra) [Concomitant]
  8. Estroil/Estradiol/Progesterone [Concomitant]
  9. Xiidra Ophth Solution [Concomitant]
  10. MegaFood Women over 55 [Concomitant]
  11. Multivit  and Mineral [Concomitant]
  12. CoQ10 (Ubiquinone) [Concomitant]
  13. Salmon Oil Omega 3s [Concomitant]
  14. Vit D3 Cholecalciferol [Concomitant]
  15. Pure Zinc (picolinate) [Concomitant]
  16. Methyl B12 Methyl Cobalamin [Concomitant]
  17. FOLATE SODIUM [Concomitant]
     Active Substance: FOLATE SODIUM
  18. Jarrow Bone-Up Cal/Mag/K [Concomitant]
  19. FISH OIL [Concomitant]
     Active Substance: FISH OIL
  20. FLAX SEED [Concomitant]
     Active Substance: FLAX SEED
  21. EVENING PRIMROSE [Concomitant]
  22. Canola [Concomitant]
  23. BLACK CURRANT [Concomitant]
     Active Substance: BLACK CURRANT
  24. Pumpkin seed oil [Concomitant]
  25. NAC N-Acetyl-L-Cystine (free form) [Concomitant]
  26. Vit E d-alpha tocopheryl [Concomitant]
  27. Lutein/Zeazanthin Multi Collagen type I,II,III, V [Concomitant]

REACTIONS (5)
  - Arthralgia [None]
  - Back pain [None]
  - Neck pain [None]
  - Arthralgia [None]
  - Headache [None]

NARRATIVE: CASE EVENT DATE: 20220516
